FAERS Safety Report 8782395 (Version 1)
Quarter: 2012Q4

REPORT INFORMATION
  Report Type: 
  Country: US (occurrence: US)
  Receive Date: 20120913
  Receipt Date: 20120913
  Transmission Date: 20130627
  Serious: No
  Sender: FDA-Public Use
  Company Number: US-VERTEX PHARMACEUTICAL INC.-2012-019866

PATIENT

DRUGS (2)
  1. INCIVEK [Suspect]
     Indication: HEPATITIS C
  2. PEGYLATED INTERFERON ALFA-2A [Concomitant]
     Indication: HEPATITIS C

REACTIONS (1)
  - Neutropenia [Unknown]
